FAERS Safety Report 7809475-9 (Version None)
Quarter: 2011Q4

REPORT INFORMATION
  Report Type: 
  Country: None (occurrence: None)
  Receive Date: 20111007
  Receipt Date: 20110921
  Transmission Date: 20120403
  Serious: Yes (Death, Disabling)
  Sender: FDA-Public Use
  Company Number: 11-592

PATIENT
  Age: 24 Year
  Sex: Male

DRUGS (5)
  1. FERROUS GLUCONATE [Suspect]
     Dosage: ORAL
     Route: 048
  2. ACETAMINOPHEN [Suspect]
     Dosage: ORAL
     Route: 048
  3. ASPIRIN [Suspect]
     Dosage: ORAL
     Route: 048
  4. IBUPROFEN [Suspect]
     Dosage: ORAL
     Route: 048
  5. KETAMINE HCL [Suspect]
     Indication: HEPATIC NECROSIS
     Dosage: ORAL
     Route: 048

REACTIONS (8)
  - MULTIPLE DRUG OVERDOSE [None]
  - NEUROLOGICAL SYMPTOM [None]
  - SEPTIC EMBOLUS [None]
  - HEPATIC NECROSIS [None]
  - ACUTE HEPATIC FAILURE [None]
  - ASPERGILLOSIS [None]
  - BRAIN STEM SYNDROME [None]
  - SEPSIS [None]
